FAERS Safety Report 25221739 (Version 1)
Quarter: 2025Q2

REPORT INFORMATION
  Report Type: Spontaneous
  Country: PL (occurrence: PL)
  Receive Date: 20250421
  Receipt Date: 20250421
  Transmission Date: 20250717
  Serious: Yes (Life-Threatening, Hospitalization)
  Sender: MYLAN
  Company Number: None

PATIENT
  Age: 85 Year
  Sex: Female
  Weight: 65 kg

DRUGS (44)
  1. CARDURA XL [Suspect]
     Active Substance: DOXAZOSIN MESYLATE
     Indication: Product used for unknown indication
     Dates: start: 20230422, end: 20230422
  2. CARDURA XL [Suspect]
     Active Substance: DOXAZOSIN MESYLATE
     Route: 065
     Dates: start: 20230422, end: 20230422
  3. CARDURA XL [Suspect]
     Active Substance: DOXAZOSIN MESYLATE
     Route: 065
     Dates: start: 20230422, end: 20230422
  4. CARDURA XL [Suspect]
     Active Substance: DOXAZOSIN MESYLATE
     Dates: start: 20230422, end: 20230422
  5. DAPAGLIFLOZIN [Suspect]
     Active Substance: DAPAGLIFLOZIN
     Indication: Product used for unknown indication
  6. DAPAGLIFLOZIN [Suspect]
     Active Substance: DAPAGLIFLOZIN
     Route: 065
  7. DAPAGLIFLOZIN [Suspect]
     Active Substance: DAPAGLIFLOZIN
     Route: 065
  8. DAPAGLIFLOZIN [Suspect]
     Active Substance: DAPAGLIFLOZIN
  9. SPIRONOLACTONE [Suspect]
     Active Substance: SPIRONOLACTONE
     Indication: Product used for unknown indication
  10. SPIRONOLACTONE [Suspect]
     Active Substance: SPIRONOLACTONE
     Route: 065
  11. SPIRONOLACTONE [Suspect]
     Active Substance: SPIRONOLACTONE
     Route: 065
  12. SPIRONOLACTONE [Suspect]
     Active Substance: SPIRONOLACTONE
  13. TELMISARTAN [Suspect]
     Active Substance: TELMISARTAN
     Indication: Product used for unknown indication
  14. TELMISARTAN [Suspect]
     Active Substance: TELMISARTAN
     Route: 065
  15. TELMISARTAN [Suspect]
     Active Substance: TELMISARTAN
     Route: 065
  16. TELMISARTAN [Suspect]
     Active Substance: TELMISARTAN
  17. LERCANIDIPINE [Concomitant]
     Active Substance: LERCANIDIPINE
  18. LERCANIDIPINE [Concomitant]
     Active Substance: LERCANIDIPINE
     Route: 065
  19. LERCANIDIPINE [Concomitant]
     Active Substance: LERCANIDIPINE
     Route: 065
  20. LERCANIDIPINE [Concomitant]
     Active Substance: LERCANIDIPINE
  21. CONTROLOC [Concomitant]
     Active Substance: PANTOPRAZOLE SODIUM
  22. CONTROLOC [Concomitant]
     Active Substance: PANTOPRAZOLE SODIUM
     Route: 065
  23. CONTROLOC [Concomitant]
     Active Substance: PANTOPRAZOLE SODIUM
     Route: 065
  24. CONTROLOC [Concomitant]
     Active Substance: PANTOPRAZOLE SODIUM
  25. Beto 100 zk [Concomitant]
  26. Beto 100 zk [Concomitant]
     Route: 065
  27. Beto 100 zk [Concomitant]
     Route: 065
  28. Beto 100 zk [Concomitant]
  29. CLOPIDOGREL BISULFATE [Concomitant]
     Active Substance: CLOPIDOGREL BISULFATE
  30. CLOPIDOGREL BISULFATE [Concomitant]
     Active Substance: CLOPIDOGREL BISULFATE
     Route: 065
  31. CLOPIDOGREL BISULFATE [Concomitant]
     Active Substance: CLOPIDOGREL BISULFATE
     Route: 065
  32. CLOPIDOGREL BISULFATE [Concomitant]
     Active Substance: CLOPIDOGREL BISULFATE
  33. ATORVASTATIN CALCIUM [Concomitant]
     Active Substance: ATORVASTATIN CALCIUM
  34. ATORVASTATIN CALCIUM [Concomitant]
     Active Substance: ATORVASTATIN CALCIUM
     Route: 065
  35. ATORVASTATIN CALCIUM [Concomitant]
     Active Substance: ATORVASTATIN CALCIUM
     Route: 065
  36. ATORVASTATIN CALCIUM [Concomitant]
     Active Substance: ATORVASTATIN CALCIUM
  37. TORSEMIDE [Concomitant]
     Active Substance: TORSEMIDE
  38. TORSEMIDE [Concomitant]
     Active Substance: TORSEMIDE
     Route: 065
  39. TORSEMIDE [Concomitant]
     Active Substance: TORSEMIDE
     Route: 065
  40. TORSEMIDE [Concomitant]
     Active Substance: TORSEMIDE
  41. ALLOPURINOL [Concomitant]
     Active Substance: ALLOPURINOL
  42. ALLOPURINOL [Concomitant]
     Active Substance: ALLOPURINOL
     Route: 065
  43. ALLOPURINOL [Concomitant]
     Active Substance: ALLOPURINOL
     Route: 065
  44. ALLOPURINOL [Concomitant]
     Active Substance: ALLOPURINOL

REACTIONS (5)
  - Acute kidney injury [Unknown]
  - Blood urea increased [Unknown]
  - Hyperkalaemia [Unknown]
  - Blood creatinine increased [Unknown]
  - Syncope [Unknown]
